FAERS Safety Report 22256021 (Version 1)
Quarter: 2023Q2

REPORT INFORMATION
  Report Type: Spontaneous
  Country: IE (occurrence: None)
  Receive Date: 20230426
  Receipt Date: 20230426
  Transmission Date: 20230721
  Serious: Yes (Disabling, Other)
  Sender: FDA-Public Use
  Company Number: 2023A089109

PATIENT
  Age: 80 Year
  Sex: Female

DRUGS (22)
  1. FASENRA [Suspect]
     Active Substance: BENRALIZUMAB
     Indication: Asthma
     Dosage: 30MG Q 4 WEEKS X 3 DOSES THEN Q 8 WEEKS THEREAFTER
     Dates: start: 20221001, end: 20230323
  2. SEPTRIN (GENERIC) [Concomitant]
     Dosage: 80/400MG
  3. EPIPEN [Concomitant]
     Active Substance: EPINEPHRINE
  4. SPIRIVA RESPIMAT [Concomitant]
     Active Substance: TIOTROPIUM BROMIDE
  5. FLECAINIDE (G) [Concomitant]
     Dosage: 100.0MG UNKNOWN
  6. BISOPROLOL [Concomitant]
     Active Substance: BISOPROLOL
  7. VITAMIN B12 [Concomitant]
     Active Substance: CYANOCOBALAMIN
  8. VENTOLIN [Concomitant]
     Active Substance: ALBUTEROL SULFATE
  9. VEDIXAL XL [Concomitant]
  10. GABAPENTIN [Concomitant]
     Active Substance: GABAPENTIN
  11. VENTOLIN [Concomitant]
     Active Substance: ALBUTEROL SULFATE
  12. PREDNISOLONE [Concomitant]
     Active Substance: PREDNISOLONE
  13. FOLIC ACID [Concomitant]
     Active Substance: FOLIC ACID
  14. ACETAMINOPHEN [Concomitant]
     Active Substance: ACETAMINOPHEN
  15. MELATONIN (G) [Concomitant]
  16. FUROSEMIDE (G) [Concomitant]
  17. DIOVAN [Concomitant]
     Active Substance: VALSARTAN
  18. TAMBOCOR [Concomitant]
     Active Substance: FLECAINIDE ACETATE
  19. SYMBICORT [Concomitant]
     Active Substance: BUDESONIDE\FORMOTEROL FUMARATE DIHYDRATE
  20. MONTELUKAST [Concomitant]
     Active Substance: MONTELUKAST SODIUM
  21. NEXAZOLE [Concomitant]
  22. CALCIUM\CHOLECALCIFEROL [Concomitant]
     Active Substance: CALCIUM\CHOLECALCIFEROL

REACTIONS (1)
  - Alopecia [Not Recovered/Not Resolved]

NARRATIVE: CASE EVENT DATE: 20230310
